FAERS Safety Report 17634786 (Version 2)
Quarter: 2020Q2

REPORT INFORMATION
  Report Type: Spontaneous
  Country: US (occurrence: US)
  Receive Date: 20200407
  Receipt Date: 20200421
  Transmission Date: 20200713
  Serious: Yes (Hospitalization, Other)
  Sender: FDA-Public Use
  Company Number: US-MACLEODS PHARMACEUTICALS US LTD-MAC2020026018

PATIENT

DRUGS (13)
  1. TRIAMCINOLONE [Suspect]
     Active Substance: TRIAMCINOLONE
     Indication: NODAL OSTEOARTHRITIS
     Dosage: 40 MILLIGRAM INJECTED INTO LEFT KNEE
     Route: 014
     Dates: start: 19880420, end: 19880420
  2. TRIAMCINOLONE [Suspect]
     Active Substance: TRIAMCINOLONE
     Dosage: 40 MILLIGRAM INJECTED INTO RIGHT KNEE
     Route: 014
     Dates: start: 19880608, end: 19880608
  3. METHYLPREDNISOLONE TABLETS [Suspect]
     Active Substance: METHYLPREDNISOLONE
     Indication: RASH
     Dosage: 6 DOSAGE FORM, QD (24 MG)
     Route: 048
  4. PREDNISOLONE TERTIARY BUTYL ACETATE [Concomitant]
     Dosage: 30 MILLIGRAM INJECTED IN THE LEFT ANSERINE BURSA
     Route: 065
     Dates: start: 19890324, end: 19890324
  5. PREDNISOLONE TERTIARY BUTYL ACETATE [Concomitant]
     Dosage: 30 MILLIGRAM INJECTED IN THE LEFT ANSERINE BURSA
     Route: 065
     Dates: start: 19890519, end: 19890519
  6. PREDNISOLONE TERTIARY BUTYL ACETATE [Concomitant]
     Dosage: 30 MILLIGRAM INJECTED IN THE LEFT ANSERINE BURSA
     Route: 065
     Dates: start: 19890331, end: 19890331
  7. TRIAMCINOLONE [Suspect]
     Active Substance: TRIAMCINOLONE
     Indication: SYNOVITIS
     Dosage: 40 MILLIGRAM INJECTED INTO RIGHT KNEE
     Route: 014
  8. INDOMETHACIN. [Concomitant]
     Active Substance: INDOMETHACIN
     Indication: PRODUCT USED FOR UNKNOWN INDICATION
     Dosage: 75 MILLIGRAM, BID
     Route: 065
  9. TRIAMCINOLONE [Suspect]
     Active Substance: TRIAMCINOLONE
     Dosage: 40 MG INJECTED INTO LEFT ANSERINE BURSA
     Route: 014
     Dates: start: 19880614, end: 19880614
  10. TRIAMCINOLONE [Suspect]
     Active Substance: TRIAMCINOLONE
     Dosage: 40 MILLIGRAM INJECTED
     Route: 014
  11. PREDNISOLONE TERTIARY BUTYL ACETATE [Concomitant]
     Indication: PRODUCT USED FOR UNKNOWN INDICATION
     Dosage: 30 MG INJECTED IN THE LEFT ANSERINE BURSA
     Route: 065
     Dates: start: 19890224, end: 19890224
  12. TRIAMCINOLONE [Suspect]
     Active Substance: TRIAMCINOLONE
     Dosage: 40 MILLIGRAM INJECTED INTO LEFT KNEE
     Route: 014
     Dates: start: 19880510, end: 19880510
  13. TRIAMCINOLONE [Suspect]
     Active Substance: TRIAMCINOLONE
     Dosage: 40 MG INJECTED INTO BOTH KNEES
     Route: 014
     Dates: start: 19880713, end: 19880713

REACTIONS (2)
  - Osteonecrosis [Unknown]
  - Synovitis [Unknown]
